FAERS Safety Report 8798286 (Version 6)
Quarter: 2019Q4

REPORT INFORMATION
  Report Type: Report from Study
  Country: US (occurrence: US)
  Receive Date: 20120920
  Receipt Date: 20191127
  Transmission Date: 20200122
  Serious: Yes (Congenital Anomaly, Other)
  Sender: FDA-Public Use
  Company Number: US-TEVA-359679USA

PATIENT
  Sex: Female

DRUGS (6)
  1. LAMIVUDINE AND ZIDOVUDINE [Suspect]
     Active Substance: LAMIVUDINE\ZIDOVUDINE
     Indication: HIV INFECTION
     Dosage: 2 UNKNOWN DAILY; COURSE ONE
     Route: 048
     Dates: start: 20120810, end: 20130621
  2. LAMIVUDINE. [Suspect]
     Active Substance: LAMIVUDINE
     Dosage: 300 MILLIGRAM DAILY; COURSE 2
     Route: 048
     Dates: start: 20130621, end: 20130624
  3. LAMIVUDINE AND ZIDOVUDINE [Suspect]
     Active Substance: LAMIVUDINE\ZIDOVUDINE
     Indication: LYMPHADENOPATHY
     Dosage: 900 MILLIGRAM DAILY; COURSE 3
     Route: 048
     Dates: start: 20130624
  4. KALETRA [Suspect]
     Active Substance: LOPINAVIR\RITONAVIR
     Indication: HIV INFECTION
     Dosage: 4 UNKNOWN DAILY; COURCE ONE
     Route: 065
     Dates: start: 20120810
  5. KALETRA [Suspect]
     Active Substance: LOPINAVIR\RITONAVIR
     Indication: LYMPHADENOPATHY
  6. ZIDOVUDINE. [Suspect]
     Active Substance: ZIDOVUDINE
     Dosage: COURCE 2
     Route: 048
     Dates: start: 20130621, end: 20130624

REACTIONS (5)
  - Neural tube defect [Recovered/Resolved]
  - Cerebral dysgenesis [Recovered/Resolved]
  - Foetal exposure during pregnancy [Unknown]
  - Abortion induced [Recovered/Resolved]
  - Arnold-Chiari malformation [Recovered/Resolved]
